FAERS Safety Report 10398201 (Version 2)
Quarter: 2014Q3

REPORT INFORMATION
  Report Type: Spontaneous
  Country: US (occurrence: None)
  Receive Date: 20130815
  Receipt Date: 20140815
  Transmission Date: 20150326
  Serious: Yes (Hospitalization, Other)
  Sender: FDA-Public Use
  Company Number: ADR-2012-01344

PATIENT
  Sex: Male

DRUGS (3)
  1. FENTANYL INTRATHECAL [Suspect]
     Active Substance: FENTANYL
  2. BACLOFEN INTRATHECAL [Suspect]
     Active Substance: BACLOFEN
     Indication: CANCER PAIN
     Dosage: UNK
  3. DILAUDID [Suspect]
     Active Substance: HYDROMORPHONE HYDROCHLORIDE
     Dosage: UNK

REACTIONS (7)
  - No therapeutic response [None]
  - Restless legs syndrome [None]
  - Drug withdrawal syndrome [None]
  - Hearing impaired [None]
  - Mobility decreased [None]
  - Insomnia [None]
  - Pain [None]
